FAERS Safety Report 9171180 (Version 2)
Quarter: 2013Q4

REPORT INFORMATION
  Report Type: Spontaneous
  Country: DE (occurrence: None)
  Receive Date: 20130308
  Receipt Date: 20131016
  Transmission Date: 20140711
  Serious: Yes (Congenital Anomaly)
  Sender: FDA-Public Use
  Company Number: DSM-2013-00269

PATIENT
  Sex: Male
  Weight: 2.89 kg

DRUGS (8)
  1. VOTUM [Suspect]
     Indication: FOETAL EXPOSURE DURING PREGNANCY
     Route: 064
     Dates: start: 20080605, end: 20080918
  2. ENALAPRIL [Suspect]
     Indication: FOETAL EXPOSURE DURING PREGNANCY
     Route: 064
     Dates: start: 20080605, end: 20080918
  3. CARMEN [Suspect]
     Route: 064
     Dates: start: 20080606, end: 20080918
  4. TRUVADA [Suspect]
     Indication: FOETAL EXPOSURE DURING PREGNANCY
     Route: 064
     Dates: end: 20090226
  5. KALETRA [Suspect]
     Indication: FOETAL EXPOSURE DURING PREGNANCY
     Route: 064
     Dates: end: 20090226
  6. BELOC ZOK [Concomitant]
  7. NIFEDIPINE [Concomitant]
  8. METHYLDOPA [Concomitant]

REACTIONS (5)
  - Congenital hearing disorder [None]
  - Maternal drugs affecting foetus [None]
  - Congenital choroid plexus cyst [None]
  - Supernumerary nipple [None]
  - Caesarean section [None]
